FAERS Safety Report 5146696-0 (Version None)
Quarter: 2006Q4

REPORT INFORMATION
  Report Type: 
  Country: None (occurrence: None)
  Receive Date: 20061109
  Receipt Date: 20061026
  Transmission Date: 20070319
  Serious: Yes (Death, Hospitalization)
  Sender: FDA-Public Use
  Company Number: GB-PURDUE-DEU_2006_0002597

PATIENT
  Age: 71 Year
  Sex: Male
  Weight: 95 kg

DRUGS (5)
  1. OXYCODONE HCL/NALOXONE HCL CR TAB20/10MG [Suspect]
     Indication: PAIN
     Dosage: 20 MG, BID
     Route: 048
     Dates: start: 20060413, end: 20061025
  2. AMLODIPINE [Concomitant]
  3. ASPIRIN [Concomitant]
  4. TRANDOLAPRIL [Concomitant]
  5. BENDROFLUMETHIAZIDE [Concomitant]

REACTIONS (1)
  - NECROTISING FASCIITIS [None]
